FAERS Safety Report 24406347 (Version 1)
Quarter: 2024Q4

REPORT INFORMATION
  Report Type: Spontaneous
  Country: US (occurrence: US)
  Receive Date: 20241007
  Receipt Date: 20241007
  Transmission Date: 20250115
  Serious: No
  Sender: LUNDBECK
  Company Number: US-LUNDBECK-DKLU4004279

PATIENT

DRUGS (18)
  1. VYEPTI [Suspect]
     Active Substance: EPTINEZUMAB-JJMR
     Indication: Migraine
     Dosage: 100 MILLIGRAM
     Route: 041
     Dates: start: 20231202, end: 20240906
  2. VYEPTI [Suspect]
     Active Substance: EPTINEZUMAB-JJMR
     Dosage: 300 MILLIGRAM
     Route: 041
     Dates: start: 20240907
  3. CYMBALTA [Concomitant]
     Active Substance: DULOXETINE HYDROCHLORIDE
     Indication: Product used for unknown indication
  4. DEXILANT [Concomitant]
     Active Substance: DEXLANSOPRAZOLE
  5. DOXEPIN [Concomitant]
     Active Substance: DOXEPIN
  6. ESTRADIOL [Concomitant]
     Active Substance: ESTRADIOL
  7. ACETAMINOPHEN\CODEINE\SALICYLAMIDE [Concomitant]
     Active Substance: ACETAMINOPHEN\CODEINE\SALICYLAMIDE
  8. FOLIC ACID [Concomitant]
     Active Substance: FOLIC ACID
  9. GABAPENTIN [Concomitant]
     Active Substance: GABAPENTIN
  10. LEVOTHYROXINE [Concomitant]
     Active Substance: LEVOTHYROXINE
  11. MELOXICAM [Concomitant]
     Active Substance: MELOXICAM
  12. METFORMIN [Concomitant]
     Active Substance: METFORMIN HYDROCHLORIDE
  13. RESTASIS [Concomitant]
     Active Substance: CYCLOSPORINE
  14. SODIUM CHLORIDE [Concomitant]
     Active Substance: SODIUM CHLORIDE
  15. SUMATRIPTAN [Concomitant]
     Active Substance: SUMATRIPTAN
  16. XANAX [Concomitant]
     Active Substance: ALPRAZOLAM
  17. ZOFRAN [Concomitant]
     Active Substance: ONDANSETRON HYDROCHLORIDE
  18. ZOMIG [Concomitant]
     Active Substance: ZOLMITRIPTAN

REACTIONS (1)
  - Therapeutic response shortened [Recovering/Resolving]
